FAERS Safety Report 18710139 (Version 2)
Quarter: 2021Q1

REPORT INFORMATION
  Report Type: Spontaneous
  Country: FR (occurrence: FR)
  Receive Date: 20210107
  Receipt Date: 20210119
  Transmission Date: 20210419
  Serious: Yes (Death, Other)
  Sender: FDA-Public Use
  Company Number: FR-SA-2021SA002491

PATIENT
  Age: 18 Month
  Sex: Male

DRUGS (1)
  1. CEREZYME [Suspect]
     Active Substance: IMIGLUCERASE
     Indication: GAUCHER^S DISEASE TYPE III
     Dosage: 2 DF, QOW
     Route: 065
     Dates: start: 202006, end: 202012

REACTIONS (2)
  - Aspiration [Fatal]
  - Gastrostomy [Unknown]

NARRATIVE: CASE EVENT DATE: 202012
